APPROVED DRUG PRODUCT: PIPERACILLIN AND TAZOBACTAM
Active Ingredient: PIPERACILLIN SODIUM; TAZOBACTAM SODIUM
Strength: EQ 4GM BASE/VIAL;EQ 500MG BASE/VIAL
Dosage Form/Route: INJECTABLE;INJECTION
Application: A208674 | Product #003 | TE Code: AP
Applicant: SAGENT PHARMACEUTICALS INC
Approved: Feb 16, 2021 | RLD: No | RS: No | Type: RX